FAERS Safety Report 4602234-X (Version None)
Quarter: 2005Q2

REPORT INFORMATION
  Report Type: 
  Country: None (occurrence: None)
  Receive Date: 20050201
  Receipt Date: 20040823
  Transmission Date: 20051028
  Serious: Yes (Other)
  Sender: FDA-Public Use
  Company Number: 200420314BWH

PATIENT
  Age: 71 Year
  Sex: Male
  Weight: 87.5442 kg

DRUGS (6)
  1. AVELOX [Suspect]
     Indication: SINUSITIS
     Dosage: 400 MG, OTTAL DAILY, ORAL
     Route: 048
     Dates: start: 20040721, end: 20040809
  2. ZOCOR [Concomitant]
  3. ASPIRIN [Concomitant]
  4. TOPROL-XL [Concomitant]
  5. FOLATE [Concomitant]
  6. IMDUR [Concomitant]

REACTIONS (9)
  - ARTHRALGIA [None]
  - BODY TEMPERATURE INCREASED [None]
  - CHROMATURIA [None]
  - FEELING ABNORMAL [None]
  - HEPATITIS [None]
  - HYPERHIDROSIS [None]
  - LIVER FUNCTION TEST ABNORMAL [None]
  - PYREXIA [None]
  - URINE BILIRUBIN INCREASED [None]
